FAERS Safety Report 8300223 (Version 3)
Quarter: 2014Q1

REPORT INFORMATION
  Report Type: Spontaneous
  Country: US (occurrence: US)
  Receive Date: 20111219
  Receipt Date: 20140305
  Transmission Date: 20141002
  Serious: No
  Sender: FDA-Public Use
  Company Number: US-ASTRAZENECA-2011SE06648

PATIENT
  Age: 60 Year
  Sex: Female

DRUGS (10)
  1. CRESTOR [Suspect]
     Route: 048
  2. SEROQUEL [Suspect]
     Route: 048
  3. ADDERALL [Concomitant]
  4. LEVOXYL [Concomitant]
  5. ATIVAN [Concomitant]
  6. TRAZODONE [Concomitant]
  7. MOBIC [Concomitant]
  8. NEURONTIN [Concomitant]
  9. CLONAZEPAM [Concomitant]
  10. CASCADE DICLOFENAC/BACLOFEN [Concomitant]

REACTIONS (3)
  - Agitation [Unknown]
  - Depression [Unknown]
  - Drug dose omission [Unknown]
